FAERS Safety Report 15232019 (Version 1)
Quarter: 2018Q4

REPORT INFORMATION
  Report Type: Spontaneous
  Country: FR (occurrence: FR)
  Receive Date: 20180802
  Receipt Date: 20180802
  Transmission Date: 20190204
  Serious: Yes (Hospitalization, Other)
  Sender: FDA-Public Use
  Company Number: FR-AUROBINDO-AUR-APL-2018-038669

PATIENT
  Age: 56 Year
  Sex: Female
  Weight: 52 kg

DRUGS (7)
  1. OXALIPLATIN. [Suspect]
     Active Substance: OXALIPLATIN
     Indication: ADENOCARCINOMA OF COLON
     Dosage: 141.8 MILLIGRAM
     Route: 042
     Dates: start: 20171222, end: 20180119
  2. FLUOROURACILE [Suspect]
     Active Substance: FLUOROURACIL
     Dosage: 646 MILLIGRAM
     Route: 042
     Dates: start: 20180301, end: 20180426
  3. OXALIPLATIN. [Suspect]
     Active Substance: OXALIPLATIN
     Dosage: 137.2 MILLIGRAM
     Route: 042
     Dates: start: 20180301, end: 20180426
  4. AVASTIN [Suspect]
     Active Substance: BEVACIZUMAB
     Indication: ADENOCARCINOMA OF COLON
     Dosage: 315 MILLIGRAM
     Route: 042
     Dates: start: 20171222, end: 20180119
  5. IRINOTECAN [Suspect]
     Active Substance: IRINOTECAN
     Indication: ADENOCARCINOMA OF COLON
     Dosage: 300 MILLIGRAM
     Route: 042
     Dates: start: 20171222, end: 20180119
  6. AVASTIN [Suspect]
     Active Substance: BEVACIZUMAB
     Dosage: 295 MILLIGRAM
     Route: 042
     Dates: start: 20180301, end: 20180412
  7. FLUOROURACILE [Suspect]
     Active Substance: FLUOROURACIL
     Indication: ADENOCARCINOMA OF COLON
     Dosage: 4670 MILLIGRAM
     Route: 042
     Dates: start: 20171222, end: 20180119

REACTIONS (5)
  - Lymphadenopathy mediastinal [Not Recovered/Not Resolved]
  - Interstitial lung disease [Not Recovered/Not Resolved]
  - Pleural thickening [Not Recovered/Not Resolved]
  - Computerised tomogram thorax abnormal [Not Recovered/Not Resolved]
  - Dyspnoea [Not Recovered/Not Resolved]

NARRATIVE: CASE EVENT DATE: 20180206
